FAERS Safety Report 7036865-7 (Version None)
Quarter: 2010Q4

REPORT INFORMATION
  Report Type: 
  Country: None (occurrence: None)
  Receive Date: 20101011
  Receipt Date: 20100926
  Transmission Date: 20110411
  Serious: Yes (Other)
  Sender: FDA-Public Use
  Company Number: PHHY2010BR67257

PATIENT
  Age: 63 Year
  Sex: Male
  Weight: 98.5 kg

DRUGS (3)
  1. VALSARTAN [Suspect]
     Dosage: 160 MG
  2. ATENOLOL [Concomitant]
     Dosage: 50 MG
  3. HYDROCHLOROTHIAZIDE [Suspect]
     Dosage: 12.5 MG

REACTIONS (4)
  - BLOOD GLUCOSE INCREASED [None]
  - BLOOD PRESSURE INADEQUATELY CONTROLLED [None]
  - ELECTROCARDIOGRAM REPOLARISATION ABNORMALITY [None]
  - LEFT VENTRICULAR HYPERTROPHY [None]
